FAERS Safety Report 8382112-3 (Version None)
Quarter: 2012Q2

REPORT INFORMATION
  Report Type: 
  Country: None (occurrence: None)
  Receive Date: 20120524
  Receipt Date: 20120518
  Transmission Date: 20120825
  Serious: Yes (Other)
  Sender: FDA-Public Use
  Company Number: US-PFIZER INC-2012121711

PATIENT
  Sex: Male

DRUGS (21)
  1. METFORMIN [Concomitant]
  2. RANEXA [Concomitant]
  3. VITAMIN B-12 [Concomitant]
  4. FOLIC ACID [Concomitant]
  5. TOPROL-XL [Concomitant]
  6. VITAMIN B6 [Concomitant]
  7. ULTRAM [Concomitant]
     Dosage: UNK
  8. PLAVIX [Concomitant]
  9. NIASPAN [Concomitant]
  10. CRESTOR [Concomitant]
  11. LOVAZA [Concomitant]
  12. ALTACE [Concomitant]
  13. NITROGLYCERIN PRN [Concomitant]
  14. GLIPIZIDE [Concomitant]
  15. IMDUR [Concomitant]
  16. TRICOR [Concomitant]
  17. LASIX [Concomitant]
  18. AMBIEN [Concomitant]
  19. NORVASC [Suspect]
     Indication: CARDIAC DISORDER
     Dosage: 10 MG, DAILY
     Route: 048
  20. ASPIRIN [Concomitant]
  21. NEXIUM [Concomitant]

REACTIONS (1)
  - JOINT INJURY [None]
